FAERS Safety Report 9704722 (Version 1)
Quarter: 2013Q4

REPORT INFORMATION
  Report Type: Spontaneous
  Country: BR (occurrence: BR)
  Receive Date: 20131122
  Receipt Date: 20131122
  Transmission Date: 20140711
  Serious: Yes (Other)
  Sender: FDA-Public Use
  Company Number: BR-PFIZER INC-2013329937

PATIENT
  Age: 55 Year
  Sex: Female
  Weight: 64.5 kg

DRUGS (3)
  1. LIPITOR [Suspect]
     Indication: BLOOD CHOLESTEROL INCREASED
     Dosage: UNK
     Route: 048
  2. LIPITOR [Suspect]
     Indication: CAROTID ARTERY OCCLUSION
  3. CITALOR [Suspect]
     Dosage: 10 MG (HALF OF 20 MG TABLET), UNK
     Route: 048
     Dates: start: 201308

REACTIONS (3)
  - Thyroid neoplasm [Unknown]
  - Weight decreased [Not Recovered/Not Resolved]
  - Alanine aminotransferase increased [Unknown]
